FAERS Safety Report 4274267-7 (Version None)
Quarter: 2004Q1

REPORT INFORMATION
  Report Type: 
  Country: None (occurrence: None)
  Receive Date: 20040115
  Receipt Date: 20031229
  Transmission Date: 20041129
  Serious: Yes (Other)
  Sender: FDA-Public Use
  Company Number: 200311439JP

PATIENT
  Age: 31 Year
  Sex: Female
  Weight: 75 kg

DRUGS (4)
  1. LASIX [Suspect]
     Indication: CARDIAC FAILURE CONGESTIVE
     Dosage: 60 MG/DAY IV
     Route: 042
     Dates: start: 20010421, end: 20010422
  2. DOPAMINE HYDROCHLORIDE [Suspect]
     Indication: SHOCK
     Dosage: 160 MG/DAY IVF
     Dates: start: 20010421, end: 20010425
  3. AMPICILLIN (VICCILLIN) [Concomitant]
  4. ZANTAC [Concomitant]

REACTIONS (10)
  - AORTIC VALVE INCOMPETENCE [None]
  - BLOOD CULTURE POSITIVE [None]
  - CARDIAC FAILURE CONGESTIVE [None]
  - COMPLICATIONS OF MATERNAL EXPOSURE TO THERAPEUTIC DRUGS [None]
  - ENDOCARDITIS [None]
  - INTRA-UTERINE DEATH [None]
  - MATERNAL DRUGS AFFECTING FOETUS [None]
  - PLACENTAL DISORDER [None]
  - PULMONARY OEDEMA [None]
  - STREPTOCOCCAL INFECTION [None]
